FAERS Safety Report 8836494 (Version 7)
Quarter: 2013Q3

REPORT INFORMATION
  Report Type: Report from Study
  Country: US (occurrence: US)
  Receive Date: 20121011
  Receipt Date: 20130806
  Transmission Date: 20140515
  Serious: Yes (Hospitalization)
  Sender: FDA-Public Use
  Company Number: US-PFIZER INC-2012244192

PATIENT
  Age: 67 Year
  Sex: Male
  Weight: 67.4 kg

DRUGS (20)
  1. FLUOROURACIL [Suspect]
     Indication: SQUAMOUS CELL CARCINOMA OF HEAD AND NECK
     Dosage: 1000 MG/M2, ON DAYS 1 TO 4
     Route: 042
     Dates: start: 20120912, end: 20120912
  2. CARBOPLATIN [Suspect]
     Indication: SQUAMOUS CELL CARCINOMA OF HEAD AND NECK
     Dosage: AUC 5, ON DAY 1
     Route: 042
     Dates: start: 20120912, end: 20120919
  3. BLINDED THERAPY [Suspect]
     Indication: HEAD AND NECK CANCER
     Dosage: LOADING DOSE, ON DAY 1, CYCLE 1 ONLY
     Route: 042
     Dates: start: 20120912, end: 20120912
  4. BLINDED THERAPY [Suspect]
     Dosage: ON DAY 1, WEEKLY
     Route: 042
     Dates: start: 20120919, end: 20120919
  5. METOPROLOL [Concomitant]
     Indication: BLOOD PRESSURE
     Dosage: UNK
  6. LEVOTHYROXINE [Concomitant]
     Indication: HYPOTHYROIDISM
     Dosage: UNK
     Dates: start: 2010
  7. CHLORHEXIDINE [Concomitant]
     Dosage: UNK
  8. ACETAMINOPHEN W/HYDROCODONE BITARTRATE [Concomitant]
     Indication: PAIN
     Dosage: UNK
  9. LOPERAMIDE [Concomitant]
     Dosage: UNK
  10. LORAZEPAM [Concomitant]
     Indication: INSOMNIA
     Dosage: UNK
  11. LORAZEPAM [Concomitant]
     Indication: NAUSEA
  12. OLANZAPINE [Concomitant]
     Indication: PROPHYLAXIS OF NAUSEA AND VOMITING
     Dosage: UNK
  13. ONDANSETRON [Concomitant]
     Indication: NAUSEA
     Dosage: UNK
  14. ONDANSETRON [Concomitant]
     Indication: VOMITING
  15. PROCHLORPERAZINE [Concomitant]
     Indication: NAUSEA
     Dosage: UNK
  16. PROCHLORPERAZINE [Concomitant]
     Indication: VOMITING
  17. TRAMADOL [Concomitant]
     Dosage: UNK
  18. CYANOCOBALAMIN [Concomitant]
     Dosage: UNK
  19. MECLIZINE [Concomitant]
     Dosage: UNK
  20. JEVITY [Concomitant]

REACTIONS (2)
  - Febrile neutropenia [Recovered/Resolved]
  - Diarrhoea [Recovered/Resolved]
